FAERS Safety Report 18789721 (Version 1)
Quarter: 2021Q1

REPORT INFORMATION
  Report Type: Other
  Country: US (occurrence: US)
  Receive Date: 20210125
  Receipt Date: 20210125
  Transmission Date: 20210419
  Serious: Yes (Other)
  Sender: FDA-Public Use
  Company Number: US-ACORDA-ACO_166527_2020

PATIENT

DRUGS (1)
  1. AMPYRA [Suspect]
     Active Substance: DALFAMPRIDINE
     Indication: PRODUCT USED FOR UNKNOWN INDICATION
     Dosage: UNK
     Route: 065
     Dates: start: 2010

REACTIONS (9)
  - Fatigue [Unknown]
  - Fall [Unknown]
  - Muscular weakness [Unknown]
  - Paraesthesia [Unknown]
  - Joint injury [Unknown]
  - Sensory loss [Unknown]
  - Median nerve injury [Unknown]
  - Gait disturbance [Unknown]
  - Muscle spasticity [Unknown]
